FAERS Safety Report 6595330-1 (Version None)
Quarter: 2010Q1

REPORT INFORMATION
  Report Type: 
  Country: None (occurrence: None)
  Receive Date: 20100219
  Receipt Date: 20100219
  Transmission Date: 20100710
  Serious: Yes (Hospitalization, Other)
  Sender: FDA-Public Use
  Company Number: None

PATIENT
  Age: 35 Year
  Sex: Female
  Weight: 53.5244 kg

DRUGS (1)
  1. BOTOX COSMETIC [Suspect]
     Indication: SKIN WRINKLING
     Dates: start: 20100211

REACTIONS (17)
  - CHEST DISCOMFORT [None]
  - CHEST PAIN [None]
  - CONFUSIONAL STATE [None]
  - CRYING [None]
  - DYSPHAGIA [None]
  - EAR DISCOMFORT [None]
  - FEELING ABNORMAL [None]
  - HEADACHE [None]
  - HEART RATE DECREASED [None]
  - HEART RATE IRREGULAR [None]
  - INJECTION SITE MASS [None]
  - MYALGIA [None]
  - PANIC ATTACK [None]
  - PRESYNCOPE [None]
  - TINNITUS [None]
  - TREMOR [None]
  - VISION BLURRED [None]
